FAERS Safety Report 17197773 (Version 2)
Quarter: 2020Q3

REPORT INFORMATION
  Report Type: Spontaneous
  Country: US (occurrence: US)
  Receive Date: 20191224
  Receipt Date: 20200727
  Transmission Date: 20201102
  Serious: Yes (Death, Hospitalization)
  Sender: FDA-Public Use
  Company Number: US-TEVA-2019-US-1157577

PATIENT
  Age: 67 Year
  Sex: Male

DRUGS (6)
  1. GLUCAGON. [Suspect]
     Active Substance: GLUCAGON
     Route: 065
  2. ALCOHOL. [Suspect]
     Active Substance: ALCOHOL
     Route: 048
  3. CALCIUM [Suspect]
     Active Substance: CALCIUM
     Route: 065
  4. ATROPINE. [Suspect]
     Active Substance: ATROPINE
     Route: 065
  5. DILTIAZEM. [Suspect]
     Active Substance: DILTIAZEM
     Dosage: INGESTED 27 DELAYED RELEASE TABLETS
     Route: 048
  6. FAT EMULSION NOS [Suspect]
     Active Substance: EGG PHOSPHOLIPIDS\SAFFLOWER OIL\SOYBEAN OIL
     Route: 042

REACTIONS (15)
  - Brain oedema [Unknown]
  - Dizziness [Unknown]
  - Intentional overdose [Fatal]
  - Thermal burn [Unknown]
  - Hypoxic-ischaemic encephalopathy [Fatal]
  - Seizure [Fatal]
  - Pain in extremity [Unknown]
  - Hyponatraemia [Fatal]
  - Tonsillar disorder [Unknown]
  - Drug ineffective [Unknown]
  - Completed suicide [Fatal]
  - Polydipsia [Fatal]
  - Toxicity to various agents [Fatal]
  - Cardiac arrest [Fatal]
  - Pupil fixed [Fatal]
